FAERS Safety Report 15395562 (Version 1)
Quarter: 2018Q3

REPORT INFORMATION
  Report Type: Spontaneous
  Country: US (occurrence: US)
  Receive Date: 20180912
  Receipt Date: 20180912
  Transmission Date: 20181010
  Serious: Yes (Death)
  Sender: FDA-Public Use
  Company Number: None

PATIENT
  Age: 70 Year
  Sex: Male
  Weight: 79.7 kg

DRUGS (4)
  1. AXICABTAGENE CILOLEUCEL [Suspect]
     Active Substance: AXICABTAGENE CILOLEUCEL
     Indication: DIFFUSE LARGE B-CELL LYMPHOMA
     Dosage: ?          OTHER ROUTE:INFUSED VIA CENTRAL LINE?
     Dates: start: 20180906, end: 20180906
  2. TOCILIZUMAB. [Concomitant]
     Active Substance: TOCILIZUMAB
     Dates: start: 20180910, end: 20180910
  3. FLUDARABINE PHOSPHATE. [Concomitant]
     Active Substance: FLUDARABINE PHOSPHATE
     Dates: start: 20180901, end: 20180903
  4. CYCLOPHOSPHAMIDE. [Concomitant]
     Active Substance: CYCLOPHOSPHAMIDE
     Dates: start: 20180901, end: 20180903

REACTIONS (7)
  - Tremor [None]
  - Dyspnoea [None]
  - Cardiac arrest [None]
  - Staphylococcal infection [None]
  - Hypotension [None]
  - Atrial fibrillation [None]
  - Pulse absent [None]

NARRATIVE: CASE EVENT DATE: 20180912
